FAERS Safety Report 11722851 (Version 2)
Quarter: 2015Q4

REPORT INFORMATION
  Report Type: Spontaneous
  Country: NL (occurrence: NL)
  Receive Date: 20151111
  Receipt Date: 20151118
  Transmission Date: 20160304
  Serious: Yes (Disabling)
  Sender: FDA-Public Use
  Company Number: NL-ASTRAZENECA-2015SF08296

PATIENT
  Age: 27840 Day
  Sex: Male
  Weight: 87 kg

DRUGS (9)
  1. SIMVASTATIN. [Concomitant]
     Active Substance: SIMVASTATIN
     Dosage: EXTRA INFO: PANTOPRAZOL,ENALAPRIL,METOPROLOLS.SIMVASTATINE
     Route: 048
     Dates: start: 20150227
  2. ACETYLSALICYLIC ACID [Concomitant]
     Active Substance: ASPIRIN
     Dosage: EXTRA INFO: PANTOPRAZOL,ENALAPRIL,METOPROLOLS.SIMVASTATINE
     Route: 048
     Dates: start: 20150227
  3. LERCANIDIPINE [Concomitant]
     Active Substance: LERCANIDIPINE
     Dosage: EXTRA INFO: PANTOPRAZOL,ENALAPRIL,METOPROLOLS.SIMVASTATINE
     Route: 048
     Dates: start: 20150227
  4. MACROGOL [Concomitant]
     Active Substance: POLYETHYLENE GLYCOLS
     Dosage: EXTRA INFO: PANTOPRAZOL,ENALAPRIL,METOPROLOLS.SIMVASTATINE
     Route: 048
     Dates: start: 20150227
  5. ENALAPRIL [Concomitant]
     Active Substance: ENALAPRIL
     Dosage: EXTRA INFO: PANTOPRAZOL,ENALAPRIL,METOPROLOLS.SIMVASTATINE
     Route: 048
     Dates: start: 20150227
  6. BRILIQUE [Suspect]
     Active Substance: TICAGRELOR
     Indication: VENOUS THROMBOSIS
     Route: 048
     Dates: start: 20150301
  7. ISOSORBIDE. [Concomitant]
     Active Substance: ISOSORBIDE
     Dosage: EXTRA INFO: PANTOPRAZOL,ENALAPRIL,METOPROLOLS.SIMVASTATINE
     Route: 048
     Dates: start: 20150227
  8. PANTOPRAZOLE [Concomitant]
     Active Substance: PANTOPRAZOLE SODIUM
     Dosage: TABLET MSR 20MG
     Route: 048
     Dates: start: 20150227
  9. METOPROLOL [Concomitant]
     Active Substance: METOPROLOL
     Dosage: TABLET 12,5MG
     Route: 048
     Dates: start: 20150227

REACTIONS (1)
  - Muscle atrophy [Not Recovered/Not Resolved]

NARRATIVE: CASE EVENT DATE: 20150415
